FAERS Safety Report 8503959-6 (Version None)
Quarter: 2012Q3

REPORT INFORMATION
  Report Type: 
  Country: None (occurrence: None)
  Receive Date: 20120711
  Receipt Date: 20120702
  Transmission Date: 20120928
  Serious: Yes (Hospitalization)
  Sender: FDA-Public Use
  Company Number: US-ACTELION-A-US2008-20856

PATIENT

DRUGS (3)
  1. REVATIO [Concomitant]
  2. TRACLEER [Suspect]
     Indication: PULMONARY HYPERTENSION
     Dosage: UNK MG, UNK
     Route: 048
     Dates: start: 20050616
  3. HYDROXYUREA [Concomitant]

REACTIONS (10)
  - ENDARTERECTOMY [None]
  - ATRIAL FIBRILLATION [None]
  - DYSPNOEA [None]
  - HOT FLUSH [None]
  - TINNITUS [None]
  - ABDOMINAL DISCOMFORT [None]
  - INTERNATIONAL NORMALISED RATIO INCREASED [None]
  - SKIN DISCOLOURATION [None]
  - HEADACHE [None]
  - ABNORMAL LOSS OF WEIGHT [None]
